FAERS Safety Report 12281694 (Version 1)
Quarter: 2016Q2

REPORT INFORMATION
  Report Type: Spontaneous
  Country: JP (occurrence: JP)
  Receive Date: 20160419
  Receipt Date: 20160419
  Transmission Date: 20160815
  Serious: Yes (Life-Threatening, Hospitalization, Other)
  Sender: FDA-Public Use
  Company Number: JP-GLAXOSMITHKLINE-JP2016JPN051481

PATIENT
  Age: 68 Year
  Sex: Female

DRUGS (14)
  1. RESTAMIN [Concomitant]
     Active Substance: DIPHENHYDRAMINE
     Dosage: 50 MG, QD
     Dates: start: 201503, end: 201503
  2. ISOTONIC SODIUM CHLORIDE SOLUTION [Concomitant]
     Active Substance: SODIUM CHLORIDE
     Dosage: 50 ML, QD
     Dates: start: 201503, end: 201503
  3. ZANTAC [Suspect]
     Active Substance: RANITIDINE HYDROCHLORIDE
     Dosage: 50 MG, QD
     Route: 041
     Dates: start: 2015, end: 2015
  4. ZANTAC [Suspect]
     Active Substance: RANITIDINE HYDROCHLORIDE
     Dosage: 50 MG, QD
     Route: 041
     Dates: start: 201503, end: 201503
  5. PACLITAXEL. [Concomitant]
     Active Substance: PACLITAXEL
     Dosage: UNK
     Dates: start: 2015, end: 2015
  6. DEXART [Concomitant]
     Active Substance: DEXAMETHASONE SODIUM PHOSPHATE
     Indication: PREMEDICATION
     Dosage: 6.6 MG, QD
     Dates: start: 201502, end: 201502
  7. ISOTONIC SODIUM CHLORIDE SOLUTION [Concomitant]
     Active Substance: SODIUM CHLORIDE
     Indication: PREMEDICATION
     Dosage: 50 ML, QD
     Dates: start: 201502, end: 201502
  8. PACLITAXEL. [Concomitant]
     Active Substance: PACLITAXEL
     Indication: OVARIAN CANCER
     Dosage: UNK
     Dates: start: 201502, end: 201502
  9. ISOTONIC SODIUM CHLORIDE SOLUTION [Concomitant]
     Active Substance: SODIUM CHLORIDE
     Dosage: 50 ML, QD
     Dates: start: 2015, end: 2015
  10. ZANTAC [Suspect]
     Active Substance: RANITIDINE HYDROCHLORIDE
     Indication: PREMEDICATION
     Dosage: 50 MG, QD
     Route: 041
     Dates: start: 201502, end: 201502
  11. RESTAMIN [Concomitant]
     Active Substance: DIPHENHYDRAMINE
     Dosage: 50 MG, QD
     Dates: start: 2015, end: 2015
  12. RESTAMIN [Concomitant]
     Active Substance: DIPHENHYDRAMINE
     Indication: PREMEDICATION
     Dosage: 50 MG, QD
     Dates: start: 201502, end: 201502
  13. DEXART [Concomitant]
     Active Substance: DEXAMETHASONE SODIUM PHOSPHATE
     Dosage: 6.6 MG, QD
     Dates: start: 2015, end: 2015
  14. DEXART [Concomitant]
     Active Substance: DEXAMETHASONE SODIUM PHOSPHATE
     Dosage: 6.6 MG, QD
     Dates: start: 201503, end: 201503

REACTIONS (4)
  - Anaphylactic shock [Recovered/Resolved]
  - Shock [Recovered/Resolved]
  - Cardio-respiratory arrest [Recovered/Resolved]
  - Loss of consciousness [Recovered/Resolved]

NARRATIVE: CASE EVENT DATE: 201503
